FAERS Safety Report 5200075-6 (Version None)
Quarter: 2007Q1

REPORT INFORMATION
  Report Type: 
  Country: None (occurrence: None)
  Receive Date: 20070105
  Receipt Date: 20070102
  Transmission Date: 20070707
  Serious: Yes (Other)
  Sender: FDA-Public Use
  Company Number: US-GLAXOSMITHKLINE-A0630441A

PATIENT
  Age: 54 Year
  Sex: Male

DRUGS (1)
  1. LAMICTAL [Suspect]
     Indication: DRUG USE FOR UNKNOWN INDICATION
     Dosage: 300MGD UNKNOWN
     Route: 048
     Dates: start: 20051101

REACTIONS (2)
  - HEPATIC ENZYME INCREASED [None]
  - PROTEIN TOTAL INCREASED [None]
